FAERS Safety Report 9845498 (Version 2)
Quarter: 2014Q2

REPORT INFORMATION
  Report Type: Spontaneous
  Country: JP (occurrence: JP)
  Receive Date: 20140127
  Receipt Date: 20140609
  Transmission Date: 20141212
  Serious: No
  Sender: FDA-Public Use
  Company Number: PHHY2014JP008339

PATIENT
  Age: 70 Year
  Sex: Female

DRUGS (1)
  1. TASIGNA [Suspect]
     Indication: BLOOD DISORDER
     Dosage: UNK UKN, UNK
     Route: 048

REACTIONS (4)
  - Fracture [Recovered/Resolved]
  - Weight decreased [Recovered/Resolved]
  - Wrong technique in drug usage process [Unknown]
  - Fall [Unknown]
